FAERS Safety Report 11388143 (Version 1)
Quarter: 2015Q3

REPORT INFORMATION
  Report Type: Spontaneous
  Country: US (occurrence: US)
  Receive Date: 20150817
  Receipt Date: 20150817
  Transmission Date: 20151125
  Serious: Yes (Other)
  Sender: FDA-Public Use
  Company Number: US-XENOPORT, INC.-2015US007075

PATIENT
  Age: 39 Year
  Sex: Female

DRUGS (3)
  1. HORIZANT [Suspect]
     Active Substance: GABAPENTIN ENACARBIL
     Indication: RESTLESS LEGS SYNDROME
     Dosage: 600 MG, DAILY
     Route: 048
     Dates: start: 201507
  2. TRAMADOL. [Concomitant]
     Active Substance: TRAMADOL
     Dosage: 50MG AS NEEDED (MAY USE UP TO 3 PER DAY)
  3. HORIZANT [Suspect]
     Active Substance: GABAPENTIN ENACARBIL
     Dosage: 300 MG, DAILY
     Route: 065

REACTIONS (3)
  - Exposure during pregnancy [Unknown]
  - Wrong technique in product usage process [Unknown]
  - Abortion spontaneous [Unknown]

NARRATIVE: CASE EVENT DATE: 20150802
